FAERS Safety Report 6944663-5 (Version None)
Quarter: 2010Q3

REPORT INFORMATION
  Report Type: 
  Country: None (occurrence: None)
  Receive Date: 20100823
  Receipt Date: 20090723
  Transmission Date: 20110219
  Serious: Yes (Other)
  Sender: FDA-Public Use
  Company Number: UK-2009-00232

PATIENT
  Age: 71 Year
  Sex: Female
  Weight: 67 kg

DRUGS (4)
  1. LISINOPRIL [Suspect]
     Indication: HYPERTENSION
     Dosage: 10 MG, ORAL
     Route: 048
     Dates: start: 20071004, end: 20090605
  2. SIMVASTATIN [Concomitant]
  3. BENDROFLUMETHIAZIDE (BENDROFLUAZIDE) (UNKNOWN) [Concomitant]
  4. METFORMIN (UNKNOWN) [Concomitant]

REACTIONS (1)
  - PSORIASIS [None]
